FAERS Safety Report 16119844 (Version 4)
Quarter: 2019Q4

REPORT INFORMATION
  Report Type: Report from Study
  Country: US (occurrence: US)
  Receive Date: 20190326
  Receipt Date: 20191231
  Transmission Date: 20200122
  Serious: Yes (Hospitalization, Other)
  Sender: FDA-Public Use
  Company Number: US-MALLINCKRODT-T201902465

PATIENT
  Sex: Female

DRUGS (4)
  1. REPOSITORY CORTICOTROPIN INJECTION [Suspect]
     Active Substance: CORTICOTROPIN
     Indication: SYSTEMIC LUPUS ERYTHEMATOSUS
     Dosage: 80 UNITS / 1 ML, 2 TIMES PER WEEK,MONDAY/THURSDAY
     Route: 058
     Dates: start: 20170817
  2. PREDNISONE. [Suspect]
     Active Substance: PREDNISONE
     Indication: PRODUCT USED FOR UNKNOWN INDICATION
     Dosage: UNK
     Route: 065
  3. REPOSITORY CORTICOTROPIN INJECTION [Suspect]
     Active Substance: CORTICOTROPIN
     Dosage: 80 UNITS / 1 MILLILITER, TWICE A WEEK (MONDAY AND THURSDAY)
     Route: 058
     Dates: end: 20191009
  4. FLU [Concomitant]
     Active Substance: INFLUENZA VIRUS VACCINE
     Indication: PRODUCT USED FOR UNKNOWN INDICATION
     Dosage: UNK
     Route: 065

REACTIONS (16)
  - Intestinal polyp [Unknown]
  - Feeling abnormal [Unknown]
  - Pruritus [Not Recovered/Not Resolved]
  - Blood glucose abnormal [Not Recovered/Not Resolved]
  - Blood pressure abnormal [Recovering/Resolving]
  - Immunodeficiency [Unknown]
  - Somnolence [Unknown]
  - Pain [Unknown]
  - Anaemia [Unknown]
  - Pneumonia [Recovering/Resolving]
  - Balance disorder [Unknown]
  - Diarrhoea [Unknown]
  - Full blood count decreased [Recovering/Resolving]
  - Visual impairment [Unknown]
  - Vomiting [Unknown]
  - Fatigue [Recovering/Resolving]

NARRATIVE: CASE EVENT DATE: 2019
